FAERS Safety Report 6105563-6 (Version None)
Quarter: 2009Q1

REPORT INFORMATION
  Report Type: 
  Country: None (occurrence: None)
  Receive Date: 20090304
  Receipt Date: 20090304
  Transmission Date: 20090719
  Serious: Yes (Other)
  Sender: FDA-Public Use
  Company Number: None

PATIENT
  Age: 42 Year
  Sex: Male

DRUGS (1)
  1. AVELOX [Suspect]
     Indication: UPPER RESPIRATORY TRACT INFECTION
     Dosage: 400MG DAILY PO
     Route: 048
     Dates: start: 20050125, end: 20050125

REACTIONS (5)
  - DYSPNOEA [None]
  - FLUSHING [None]
  - NAUSEA [None]
  - RASH ERYTHEMATOUS [None]
  - URTICARIA [None]
